FAERS Safety Report 7687204-X (Version None)
Quarter: 2011Q3

REPORT INFORMATION
  Report Type: 
  Country: None (occurrence: None)
  Receive Date: 20110816
  Receipt Date: 20110810
  Transmission Date: 20111222
  Serious: Yes (Death, Life-Threatening, Other)
  Sender: FDA-Public Use
  Company Number: FR-PFIZER INC-2011183142

PATIENT
  Age: 55 Year
  Sex: Male

DRUGS (8)
  1. IMOVANE [Suspect]
     Dosage: 7.5 MG, 1X/DAY
     Route: 048
  2. ACETAMINOPHEN [Suspect]
     Dosage: 1 G, 3X/DAY
     Route: 048
  3. NOZINAN [Suspect]
     Dosage: 50 MG, 3X/DAY
     Route: 048
  4. LOPRESSOR [Concomitant]
     Dosage: 1/2 IN THE MORNING
  5. CLONAZEPAM [Suspect]
     Dosage: 15 DROPS BEFORE SLEEPING
     Route: 048
  6. EFFEXOR XR [Suspect]
     Dosage: 225 MG IN THE MORNING AND 150 MG AT MIDDAY (LUNCH TIME)
     Route: 048
  7. FERROUS SULFATE TAB [Concomitant]
     Dosage: 1 DOSAGE FORM IN THE MORNING
  8. TRAMADOL HCL [Suspect]
     Dosage: 200 MG IN THE MORNING AND THE EVENING, AND 50 MG AT MIDDAY
     Route: 048

REACTIONS (3)
  - DRUG LEVEL INCREASED [None]
  - CARDIO-RESPIRATORY ARREST [None]
  - ELECTROENCEPHALOGRAM ABNORMAL [None]
